FAERS Safety Report 7214274-5 (Version None)
Quarter: 2011Q1

REPORT INFORMATION
  Report Type: 
  Country: None (occurrence: None)
  Receive Date: 20110107
  Receipt Date: 20101230
  Transmission Date: 20110831
  Serious: Yes (Other)
  Sender: FDA-Public Use
  Company Number: US-PFIZER INC-2010182464

PATIENT
  Sex: Female

DRUGS (1)
  1. CHANTIX [Suspect]
     Dosage: UNK
     Dates: start: 20070720

REACTIONS (10)
  - BIPOLAR I DISORDER [None]
  - DELUSION [None]
  - SCHIZOPHRENIA [None]
  - ANXIETY [None]
  - MENTAL DISORDER [None]
  - HALLUCINATION, VISUAL [None]
  - HALLUCINATION, AUDITORY [None]
  - MANIA [None]
  - PHYSICAL ASSAULT [None]
  - AGGRESSION [None]
